FAERS Safety Report 7539164-X (Version None)
Quarter: 2011Q2

REPORT INFORMATION
  Report Type: 
  Country: None (occurrence: None)
  Receive Date: 20110610
  Receipt Date: 20040401
  Transmission Date: 20111010
  Serious: Yes (Death)
  Sender: FDA-Public Use
  Company Number: PHFR2004GB01054

PATIENT
  Sex: Female

DRUGS (2)
  1. CLOZAPINE [Suspect]
     Indication: SCHIZOPHRENIA
     Dosage: 50MG MANE 275MG NOCTE
     Route: 048
     Dates: start: 19911008
  2. LOFEPRAMINE [Concomitant]
     Indication: DEPRESSED MOOD
     Dosage: 140MG NOCTE 70 MG MANE
     Route: 048
     Dates: start: 19970101

REACTIONS (2)
  - DECREASED APPETITE [None]
  - BRONCHOPNEUMONIA [None]
